FAERS Safety Report 5062688-4 (Version None)
Quarter: 2006Q3

REPORT INFORMATION
  Report Type: 
  Country: None (occurrence: None)
  Receive Date: 20060726
  Receipt Date: 20060726
  Transmission Date: 20061208
  Serious: No
  Sender: FDA-Public Use
  Company Number: None

PATIENT
  Sex: Male

DRUGS (1)
  1. AMINOCAPROIC ACID [Suspect]
     Indication: BLOOD TRIGLYCERIDES INCREASED
     Dosage: 1 GRAM TWICE DAILY PO
     Route: 048

REACTIONS (2)
  - INTERCEPTED DRUG DISPENSING ERROR [None]
  - MEDICATION ERROR [None]
